FAERS Safety Report 8225781-0 (Version None)
Quarter: 2012Q1

REPORT INFORMATION
  Report Type: 
  Country: None (occurrence: None)
  Receive Date: 20120321
  Receipt Date: 20120312
  Transmission Date: 20120608
  Serious: Yes (Hospitalization, Other)
  Sender: FDA-Public Use
  Company Number: FR-ELI_LILLY_AND_COMPANY-FR201108008847

PATIENT
  Sex: Male
  Weight: 83 kg

DRUGS (3)
  1. FORTEO [Suspect]
     Indication: OSTEOPOROSIS
     Dosage: 20 UG, QD
     Route: 058
     Dates: start: 20101106
  2. CORTICOSTEROIDS [Concomitant]
     Dosage: UNK
     Dates: end: 20110201
  3. MYCOPHENOLATE MOFETIL (CELLCEPT) [Concomitant]
     Dosage: UNK
     Dates: start: 20110201

REACTIONS (2)
  - PROSTATIC ADENOMA [None]
  - MULTIPLE MYELOMA [None]
